FAERS Safety Report 11160457 (Version 1)
Quarter: 2015Q2

REPORT INFORMATION
  Report Type: Spontaneous
  Country: US (occurrence: US)
  Receive Date: 20150604
  Receipt Date: 20150604
  Transmission Date: 20150821
  Serious: No
  Sender: FDA-Public Use
  Company Number: US-SA-2014SA058961

PATIENT
  Age: 70 Year
  Sex: Male

DRUGS (1)
  1. LANTUS [Suspect]
     Active Substance: INSULIN GLARGINE
     Indication: TYPE 2 DIABETES MELLITUS
     Dosage: DOSE: STARTED AT 5 UNITS , WAS TO INCREASE BY 1 UNIT EVERY DAY, CURRENT DOSE: 22 U
     Route: 065
     Dates: start: 20140409

REACTIONS (1)
  - Blood glucose increased [Unknown]
